FAERS Safety Report 9607563 (Version 1)
Quarter: 2013Q4

REPORT INFORMATION
  Report Type: Spontaneous
  Country: GB (occurrence: None)
  Receive Date: 20131004
  Receipt Date: 20131004
  Transmission Date: 20140711
  Serious: Yes (Other)
  Sender: FDA-Public Use
  Company Number: AUR-APL-2013-08115

PATIENT
  Age: 15 Year
  Sex: Female
  Weight: 49 kg

DRUGS (2)
  1. FLUOXETINE [Suspect]
     Indication: DEPRESSION
     Route: 048
  2. MICROGYNON (EUGYNON) [Concomitant]

REACTIONS (5)
  - Nausea [None]
  - Vomiting [None]
  - Hepatitis [None]
  - Eating disorder [None]
  - Condition aggravated [None]
